FAERS Safety Report 6722154-4 (Version None)
Quarter: 2010Q2

REPORT INFORMATION
  Report Type: 
  Country: None (occurrence: None)
  Receive Date: 20100512
  Receipt Date: 20100507
  Transmission Date: 20101027
  Serious: Yes (Hospitalization)
  Sender: FDA-Public Use
  Company Number: US-RB-006615-10

PATIENT
  Sex: Female

DRUGS (12)
  1. SUBOXONE [Suspect]
     Route: 060
  2. KLONOPIN [Suspect]
     Indication: ANXIETY
     Route: 065
  3. LYRICA [Concomitant]
     Indication: FIBROMYALGIA
     Dosage: DOSING DETAILS UNKNOWN
     Route: 065
  4. TOPROL-XL [Concomitant]
     Dosage: DOSING DETAILS UNKNOWN
     Route: 065
  5. PREMARIN [Concomitant]
     Indication: POSTMENOPAUSE
     Dosage: DOSING DETAILS UNKNOWN
     Route: 065
  6. LOPID [Concomitant]
     Dosage: DOSING DETAILS UNKNOWN
     Route: 065
  7. LOPID [Concomitant]
     Dosage: DOSING DETAILS UNKNOWN
     Route: 065
  8. SIMVASTATIN [Concomitant]
     Dosage: DOSING DETAILS UNKNOWN
     Route: 065
  9. SIMVASTATIN [Concomitant]
     Dosage: DOSING DETAILS UNKNOWN
     Route: 065
  10. SEROQUEL [Suspect]
     Indication: BIPOLAR DISORDER
     Dosage: DOSING DETAILS UNKNOWN
     Route: 065
  11. PREVACID [Concomitant]
     Dosage: DOSING DETAILS UNKNOWN
     Route: 065
  12. LEVOTHYROXINE SODIUM [Concomitant]
     Indication: HYPOTHYROIDISM
     Dosage: DOSING DETAILS UNKNOWN
     Route: 065

REACTIONS (2)
  - COORDINATION ABNORMAL [None]
  - PNEUMONIA [None]
